FAERS Safety Report 8015027-0 (Version None)
Quarter: 2011Q4

REPORT INFORMATION
  Report Type: 
  Country: None (occurrence: None)
  Receive Date: 20111230
  Receipt Date: 20111221
  Transmission Date: 20120403
  Serious: No
  Sender: FDA-Public Use
  Company Number: US-BIOGENIDEC-2011BI010055

PATIENT
  Age: 42 Year
  Sex: Female

DRUGS (1)
  1. TYSABRI [Suspect]
     Indication: MULTIPLE SCLEROSIS
     Route: 042
     Dates: start: 20110303

REACTIONS (8)
  - MULTIPLE SCLEROSIS RELAPSE [None]
  - EUPHORIC MOOD [None]
  - PRURITUS [None]
  - HEADACHE [None]
  - INFLUENZA LIKE ILLNESS [None]
  - ABDOMINAL TENDERNESS [None]
  - FATIGUE [None]
  - ABDOMINAL DISTENSION [None]
